FAERS Safety Report 5729019-5 (Version None)
Quarter: 2008Q2

REPORT INFORMATION
  Report Type: 
  Country: None (occurrence: None)
  Receive Date: 20080505
  Receipt Date: 20080505
  Transmission Date: 20081010
  Serious: Yes (Hospitalization, Disabling, Other)
  Sender: FDA-Public Use
  Company Number: None

PATIENT
  Sex: Female

DRUGS (2)
  1. TRILEPTAL [Suspect]
     Indication: PAIN
     Dosage: 300MG - NOT SURE
  2. SURROUND LEG BRACES [Suspect]
     Indication: PAIN
     Dosage: 4 1/2 MOS.

REACTIONS (5)
  - AMNESIA [None]
  - BONE PAIN [None]
  - MYALGIA [None]
  - NEURALGIA [None]
  - PAIN IN EXTREMITY [None]
